FAERS Safety Report 15531337 (Version 1)
Quarter: 2018Q4

REPORT INFORMATION
  Report Type: Report from Study
  Country: US (occurrence: US)
  Receive Date: 20181019
  Receipt Date: 20181019
  Transmission Date: 20190205
  Serious: Yes (Hospitalization, Other)
  Sender: FDA-Public Use
  Company Number: US-BIOGEN-2018BI00646692

PATIENT
  Sex: Male

DRUGS (2)
  1. TECFIDERA [Suspect]
     Active Substance: DIMETHYL FUMARATE
     Indication: MULTIPLE SCLEROSIS
     Dosage: STARTING DOSE
     Route: 048
  2. TECFIDERA [Suspect]
     Active Substance: DIMETHYL FUMARATE
     Dosage: MAINTENANCE DOSE
     Route: 048

REACTIONS (8)
  - Balance disorder [Not Recovered/Not Resolved]
  - Headache [Not Recovered/Not Resolved]
  - Seizure [Not Recovered/Not Resolved]
  - Central nervous system lesion [Not Recovered/Not Resolved]
  - Eye disorder [Not Recovered/Not Resolved]
  - Hot flush [Recovered/Resolved]
  - Gait disturbance [Not Recovered/Not Resolved]
  - Diabetes mellitus [Not Recovered/Not Resolved]
